FAERS Safety Report 21133586 (Version 1)
Quarter: 2022Q3

REPORT INFORMATION
  Report Type: Spontaneous
  Country: US (occurrence: None)
  Receive Date: 20220726
  Receipt Date: 20220726
  Transmission Date: 20221026
  Serious: Yes (Hospitalization)
  Sender: FDA-Public Use
  Company Number: None

PATIENT
  Age: 94 Year
  Sex: Male

DRUGS (1)
  1. APIXABAN [Suspect]
     Active Substance: APIXABAN
     Indication: Atrial fibrillation
     Dates: start: 20201204

REACTIONS (4)
  - Haemoglobin decreased [None]
  - Haemorrhage [None]
  - Urinary tract infection [None]
  - Mental status changes [None]

NARRATIVE: CASE EVENT DATE: 20220715
